FAERS Safety Report 15334897 (Version 1)
Quarter: 2018Q3

REPORT INFORMATION
  Report Type: Spontaneous
  Country: US (occurrence: US)
  Receive Date: 20180827
  Receipt Date: 20180827
  Transmission Date: 20181010
  Serious: Yes (Hospitalization)
  Sender: FDA-Public Use
  Company Number: None

PATIENT
  Sex: Male

DRUGS (14)
  1. GLIPIZIDE. [Concomitant]
     Active Substance: GLIPIZIDE
  2. AMLODIPINE [Concomitant]
     Active Substance: AMLODIPINE BESYLATE
  3. TIMOLOL. [Concomitant]
     Active Substance: TIMOLOL
  4. ATORVASTATIN [Concomitant]
     Active Substance: ATORVASTATIN
  5. PANTOPRAZOLE [Concomitant]
     Active Substance: PANTOPRAZOLE
  6. SENEXON?S [Concomitant]
     Active Substance: DOCUSATE SODIUM\SENNOSIDES A AND B
  7. CARVEDILOL. [Concomitant]
     Active Substance: CARVEDILOL
  8. LEVOTHYROXIN [Concomitant]
     Active Substance: LEVOTHYROXINE
  9. HYDROCHLOROT [Concomitant]
     Active Substance: HYDROCHLOROTHIAZIDE
  10. LISINOPRIL. [Concomitant]
     Active Substance: LISINOPRIL
  11. POT CITRATE [Concomitant]
     Active Substance: POTASSIUM CITRATE
  12. FIRMAGON [Suspect]
     Active Substance: DEGARELIX ACETATE
     Indication: PROSTATE CANCER
     Route: 058
     Dates: start: 20180216
  13. XTANDI [Concomitant]
     Active Substance: ENZALUTAMIDE
  14. BRIMONIDINE [Concomitant]
     Active Substance: BRIMONIDINE TARTRATE

REACTIONS (1)
  - Disease progression [None]
